FAERS Safety Report 19733076 (Version 1)
Quarter: 2021Q3

REPORT INFORMATION
  Report Type: Spontaneous
  Country: QA (occurrence: QA)
  Receive Date: 20210823
  Receipt Date: 20210823
  Transmission Date: 20211014
  Serious: Yes (Other)
  Sender: FDA-Public Use
  Company Number: QA-SA-2021SA273612

PATIENT

DRUGS (2)
  1. DUPIXENT [Suspect]
     Active Substance: DUPILUMAB
     Dosage: UNK
  2. BARICITINIB. [Suspect]
     Active Substance: BARICITINIB

REACTIONS (1)
  - Cutaneous T-cell lymphoma [Unknown]
